FAERS Safety Report 4600314-6 (Version None)
Quarter: 2005Q1

REPORT INFORMATION
  Report Type: 
  Country: None (occurrence: None)
  Receive Date: 20050303
  Receipt Date: 20050215
  Transmission Date: 20050727
  Serious: Yes (Hospitalization, Other)
  Sender: FDA-Public Use
  Company Number: USA030537110

PATIENT
  Age: 57 Year
  Sex: Female
  Weight: 42 kg

DRUGS (5)
  1. FORTEO [Suspect]
     Indication: OSTEOPOROSIS
     Dosage: 20 UG DAY
     Dates: start: 20030512
  2. FOSAMAX [Concomitant]
  3. PREMARIN [Concomitant]
  4. VIACTIV [Concomitant]
  5. VITAMIN D [Concomitant]

REACTIONS (14)
  - BLOOD CALCIUM ABNORMAL [None]
  - BLOOD CREATININE DECREASED [None]
  - DRUG INEFFECTIVE [None]
  - INJECTION SITE HAEMORRHAGE [None]
  - INJECTION SITE PAIN [None]
  - NAIL DISORDER [None]
  - NERVOUSNESS [None]
  - PERIPHERAL COLDNESS [None]
  - PHARMACEUTICAL PRODUCT COMPLAINT [None]
  - ROAD TRAFFIC ACCIDENT [None]
  - SYNCOPE [None]
  - TREMOR [None]
  - URINE CALCIUM DECREASED [None]
  - VITAMIN D ABNORMAL [None]
